FAERS Safety Report 21457286 (Version 1)
Quarter: 2022Q4

REPORT INFORMATION
  Report Type: Spontaneous
  Country: JP (occurrence: JP)
  Receive Date: 20221014
  Receipt Date: 20221014
  Transmission Date: 20230113
  Serious: Yes (Hospitalization, Other)
  Sender: FDA-Public Use
  Company Number: None

PATIENT
  Age: 51 Year
  Sex: Male

DRUGS (5)
  1. LEVETIRACETAM [Suspect]
     Active Substance: LEVETIRACETAM
     Indication: Cerebrovascular arteriovenous malformation
     Dosage: 200,000 MG
     Route: 065
  2. TELMISARTAN [Suspect]
     Active Substance: TELMISARTAN
     Indication: Hypertension
     Route: 065
  3. AMLODIPINE [Suspect]
     Active Substance: AMLODIPINE BESYLATE
     Indication: Hypertension
     Route: 065
  4. BROTIZOLAM [Suspect]
     Active Substance: BROTIZOLAM
     Indication: Cerebrovascular arteriovenous malformation
     Route: 065
  5. LACOSAMIDE [Concomitant]
     Active Substance: LACOSAMIDE
     Indication: Epilepsy
     Route: 065

REACTIONS (4)
  - Toxicity to various agents [Recovered/Resolved]
  - Overdose [Unknown]
  - Suicide attempt [Unknown]
  - Acute kidney injury [Recovered/Resolved]
